FAERS Safety Report 4735756-1 (Version None)
Quarter: 2005Q3

REPORT INFORMATION
  Report Type: 
  Country: None (occurrence: None)
  Receive Date: 20050805
  Receipt Date: 20050721
  Transmission Date: 20060218
  Serious: Yes (Other)
  Sender: FDA-Public Use
  Company Number: DE-JNJFOC-20050705030

PATIENT
  Age: 61 Year
  Sex: Female

DRUGS (7)
  1. TOPAMAX [Suspect]
     Indication: DEPRESSION
     Route: 048
  2. RISPERDAL [Suspect]
     Indication: DRUG USE FOR UNKNOWN INDICATION
     Route: 048
  3. TREVILOR [Suspect]
     Route: 048
  4. TREVILOR [Suspect]
     Indication: DRUG USE FOR UNKNOWN INDICATION
     Route: 048
  5. ERGENYL CHRONO [Concomitant]
     Route: 048
  6. ERGENYL CHRONO [Concomitant]
     Route: 048
  7. MIRTAZAPINE [Concomitant]
     Route: 048

REACTIONS (1)
  - HYPERTENSIVE CRISIS [None]
